FAERS Safety Report 8334253-4 (Version None)
Quarter: 2012Q1

REPORT INFORMATION
  Report Type: 
  Country: None (occurrence: None)
  Receive Date: 20120329
  Receipt Date: 20100730
  Transmission Date: 20120608
  Serious: Yes (Other)
  Sender: FDA-Public Use
  Company Number: PHHY2010US23697

PATIENT
  Age: 70 Year
  Sex: Female
  Weight: 138 kg

DRUGS (1)
  1. EXELON [Suspect]
     Indication: DEMENTIA
     Dosage: 4.6MG/24 HOURS, TRANSDERMAL
     Route: 062
     Dates: start: 20100401, end: 20100420

REACTIONS (4)
  - APPLICATION SITE SWELLING [None]
  - APPLICATION SITE PRURITUS [None]
  - RASH [None]
  - APPLICATION SITE REACTION [None]
